FAERS Safety Report 4829332-X (Version None)
Quarter: 2005Q4

REPORT INFORMATION
  Report Type: 
  Country: None (occurrence: None)
  Receive Date: 20051115
  Receipt Date: 20051115
  Transmission Date: 20060501
  Serious: Yes (Hospitalization)
  Sender: FDA-Public Use
  Company Number: None

PATIENT
  Age: 71 Year
  Sex: Male
  Weight: 64.4108 kg

DRUGS (1)
  1. IRESSA [Suspect]
     Indication: PANCREATIC CARCINOMA
     Dosage: 250 MG  DAILY  PO
     Route: 048
     Dates: start: 20050829, end: 20051114

REACTIONS (2)
  - DEHYDRATION [None]
  - SYNCOPE [None]
